FAERS Safety Report 6606485-4 (Version None)
Quarter: 2010Q1

REPORT INFORMATION
  Report Type: 
  Country: None (occurrence: None)
  Receive Date: 20100226
  Receipt Date: 20100216
  Transmission Date: 20100710
  Serious: Yes (Hospitalization, Other)
  Sender: FDA-Public Use
  Company Number: PHEH2010US01700

PATIENT
  Sex: Female

DRUGS (3)
  1. GLEEVEC [Suspect]
     Indication: CHRONIC MYELOID LEUKAEMIA
     Dosage: 200 MG, QD
     Route: 048
     Dates: start: 20090910
  2. SYNTHROID [Concomitant]
  3. COZAAR [Concomitant]

REACTIONS (4)
  - FALL [None]
  - HIP ARTHROPLASTY [None]
  - HIP FRACTURE [None]
  - PAIN [None]
